FAERS Safety Report 4634279-8 (Version None)
Quarter: 2005Q2

REPORT INFORMATION
  Report Type: 
  Country: None (occurrence: None)
  Receive Date: 20050411
  Receipt Date: 20050403
  Transmission Date: 20051028
  Serious: No
  Sender: FDA-Public Use
  Company Number: FABR-10462

PATIENT
  Age: 51 Year
  Sex: Male
  Weight: 56 kg

DRUGS (7)
  1. FABRAZYME [Suspect]
     Indication: FABRY'S DISEASE
     Dates: start: 20030821, end: 20040422
  2. DIPYRIDAMOLE [Concomitant]
  3. ASPIRIN [Concomitant]
  4. FLECAINIDE ACETATE [Concomitant]
  5. BIFIDOBACTERIUM [Concomitant]
  6. MAGNESIUM OXIDE [Concomitant]
  7. FAMOTIDINE [Concomitant]

REACTIONS (2)
  - BILE DUCT STONE [None]
  - CHOLELITHIASIS [None]
